FAERS Safety Report 6249359-3 (Version None)
Quarter: 2009Q2

REPORT INFORMATION
  Report Type: 
  Country: None (occurrence: None)
  Receive Date: 20090629
  Receipt Date: 20090625
  Transmission Date: 20091009
  Serious: Yes (Death)
  Sender: FDA-Public Use
  Company Number: GB-WYE-H09820809

PATIENT
  Sex: Female
  Weight: 68 kg

DRUGS (5)
  1. CMC-544 [Suspect]
     Indication: MANTLE CELL LYMPHOMA
     Dosage: 3.6; MONTHLY
     Route: 042
     Dates: start: 20090522, end: 20090620
  2. PERINDOPRIL [Concomitant]
     Indication: HYPERTENSION
     Dosage: NOT PROVIDED
     Route: 065
     Dates: end: 20090520
  3. ACYCLOVIR [Concomitant]
     Indication: PROPHYLAXIS
     Dosage: NOT PROVIDED
     Route: 065
     Dates: end: 20090520
  4. RITUXIMAB [Suspect]
     Indication: MANTLE CELL LYMPHOMA
     Dosage: 750MG (375MG/M^2); FREQUENCY NOT PROVIDED
     Route: 042
     Dates: start: 20090521, end: 20090618
  5. ALLOPURINOL [Concomitant]
     Indication: PROPHYLAXIS
     Dosage: NOT PROVIDED
     Route: 065
     Dates: end: 20090520

REACTIONS (1)
  - CARDIAC ARREST [None]
